FAERS Safety Report 7528985 (Version 1)
Quarter: 2020Q3

REPORT INFORMATION
  Report Type: Report from Study
  Country: US (occurrence: US)
  Receive Date: 20100805
  Receipt Date: 20100805
  Transmission Date: 20201104
  Serious: Yes (Hospitalization)
  Sender: FDA-Public Use
  Company Number: US-JNJFOC-20100708646

PATIENT
  Age: 48 Year
  Sex: Male
  Weight: 122.9 kg

DRUGS (8)
  1. USTEKINUMAB [Suspect]
     Active Substance: USTEKINUMAB
     Indication: PSORIASIS
     Route: 058
  2. LISINOPRIL. [Concomitant]
     Active Substance: LISINOPRIL
     Route: 048
  3. INDOMETHACIN. [Concomitant]
     Active Substance: INDOMETHACIN
     Indication: PSORIATIC ARTHROPATHY
     Route: 048
  4. USTEKINUMAB [Suspect]
     Active Substance: USTEKINUMAB
     Indication: PSORIASIS
     Route: 058
  5. HYDROCHLOROTHIAZIDE. [Concomitant]
     Active Substance: HYDROCHLOROTHIAZIDE
     Route: 048
  6. PLACEBO [Suspect]
     Active Substance: UNSPECIFIED INGREDIENT
     Indication: PSORIASIS
     Route: 058
  7. TYLENOL WITH CODEINE [Concomitant]
     Active Substance: ACETAMINOPHEN\CODEINE PHOSPHATE
     Route: 048
  8. SIMVASTATIN. [Concomitant]
     Active Substance: SIMVASTATIN
     Route: 048

REACTIONS (1)
  - Appendicitis perforated [Recovered/Resolved]

NARRATIVE: CASE EVENT DATE: 20100602
